FAERS Safety Report 7565445-X (Version None)
Quarter: 2011Q2

REPORT INFORMATION
  Report Type: 
  Country: None (occurrence: None)
  Receive Date: 20110623
  Receipt Date: 20110614
  Transmission Date: 20111010
  Serious: No
  Sender: FDA-Public Use
  Company Number: US-BIOGENIDEC-2011BI022073

PATIENT
  Age: 70 Year
  Sex: Female

DRUGS (2)
  1. TYSABRI [Suspect]
     Indication: MULTIPLE SCLEROSIS
     Route: 042
     Dates: start: 20110406
  2. TYSABRI [Suspect]
     Route: 042
     Dates: start: 20091007, end: 20100420

REACTIONS (2)
  - MUSCULAR WEAKNESS [None]
  - DRUG EFFECT DECREASED [None]
